FAERS Safety Report 15029614 (Version 1)
Quarter: 2018Q2

REPORT INFORMATION
  Report Type: Report from Study
  Country: None (occurrence: HU)
  Receive Date: 20180619
  Receipt Date: 20180619
  Transmission Date: 20180711
  Serious: Yes (Hospitalization)
  Sender: FDA-Public Use
  Company Number: HU-ABBVIE-18P-076-2390682-00

PATIENT
  Age: 71 Year
  Sex: Female

DRUGS (5)
  1. LEPONEX [Concomitant]
     Active Substance: CLOZAPINE
     Indication: HALLUCINATION
     Route: 048
     Dates: start: 20171212
  2. VITAMIN B COMPLEX MULTIVITAMIN [Concomitant]
     Indication: AXONAL NEUROPATHY
     Dosage: RECOMMENDED DAILY DOSE FOR AN ADULT
     Route: 048
     Dates: start: 20170525
  3. DUODOPA [Suspect]
     Active Substance: CARBIDOPA\LEVODOPA
     Route: 050
     Dates: start: 20160913
  4. LETROX [Concomitant]
     Active Substance: LEVOTHYROXINE SODIUM
     Indication: HYPOTHYROIDISM
     Dosage: 50 UG
     Route: 048
     Dates: start: 2000
  5. DUODOPA [Suspect]
     Active Substance: CARBIDOPA\LEVODOPA
     Indication: PARKINSON^S DISEASE
     Dosage: TITRATION: DOSING AT TIME OF NJ REMOVAL: MD: 9 CD: 4.3 ML/H ED: 2.5 ML, 4X/D, 18 H/D
     Route: 050
     Dates: start: 20160910, end: 20160910

REACTIONS (1)
  - Dermatitis [Not Recovered/Not Resolved]

NARRATIVE: CASE EVENT DATE: 20180613
